FAERS Safety Report 8727468 (Version 5)
Quarter: 2013Q2

REPORT INFORMATION
  Report Type: Report from Study
  Country: GB (occurrence: GB)
  Receive Date: 20120816
  Receipt Date: 20130411
  Transmission Date: 20140414
  Serious: Yes (Hospitalization)
  Sender: FDA-Public Use
  Company Number: GB-GENZYME-CAMP-1002367

PATIENT
  Age: 50 Year
  Sex: Female
  Weight: 62 kg

DRUGS (5)
  1. ALEMTUZUMAB [Suspect]
     Indication: MULTIPLE SCLEROSIS
     Dosage: 12 MG, QD
     Route: 042
     Dates: start: 20091109, end: 20091111
  2. ALEMTUZUMAB [Suspect]
     Dosage: 12 MG, QD
     Route: 042
     Dates: start: 20081103, end: 20081107
  3. METHYLPREDNISOLONE [Concomitant]
     Indication: MULTIPLE SCLEROSIS
     Dosage: 1 G, QD
     Route: 042
     Dates: start: 20081103, end: 20081105
  4. METHYLPREDNISOLONE [Concomitant]
     Indication: MULTIPLE SCLEROSIS
     Dosage: 1 G, QD
     Route: 042
     Dates: start: 20091109, end: 20091111
  5. CARBIMAZOLE [Concomitant]
     Indication: HYPERTHYROIDISM
     Dosage: 10 MG, UNK
     Route: 048

REACTIONS (1)
  - Breast cancer [Recovered/Resolved with Sequelae]
